FAERS Safety Report 14503177 (Version 2)
Quarter: 2018Q2

REPORT INFORMATION
  Report Type: Spontaneous
  Country: US (occurrence: US)
  Receive Date: 20180208
  Receipt Date: 20180405
  Transmission Date: 20180711
  Serious: No
  Sender: FDA-Public Use
  Company Number: US-PFIZER INC-2018053287

PATIENT
  Age: 69 Year
  Sex: Female

DRUGS (1)
  1. BOSULIF [Suspect]
     Active Substance: BOSUTINIB MONOHYDRATE
     Indication: CHRONIC MYELOID LEUKAEMIA
     Dosage: 400 MG, DAILY (TOTAL OF FOUR DOSES)
     Route: 048
     Dates: start: 20180131, end: 20180204

REACTIONS (3)
  - Musculoskeletal stiffness [Recovered/Resolved]
  - Neck pain [Recovered/Resolved]
  - Musculoskeletal pain [Recovered/Resolved]
